FAERS Safety Report 6503735-X (Version None)
Quarter: 2009Q4

REPORT INFORMATION
  Report Type: 
  Country: None (occurrence: None)
  Receive Date: 20091217
  Receipt Date: 20091210
  Transmission Date: 20100525
  Serious: Yes (Other)
  Sender: FDA-Public Use
  Company Number: US-ASTRAZENECA-2009SE31113

PATIENT
  Age: 9514 Day
  Sex: Female
  Weight: 104.3 kg

DRUGS (2)
  1. SEROQUEL XR [Suspect]
     Route: 048
     Dates: start: 20091208, end: 20091208
  2. CELEXA [Concomitant]
     Route: 048

REACTIONS (6)
  - ALTERED STATE OF CONSCIOUSNESS [None]
  - GLUCOSE TOLERANCE IMPAIRED [None]
  - HYPERSOMNIA [None]
  - IMPAIRED WORK ABILITY [None]
  - INCREASED APPETITE [None]
  - SPEECH DISORDER [None]
